FAERS Safety Report 4657980-9 (Version None)
Quarter: 2005Q2

REPORT INFORMATION
  Report Type: 
  Country: None (occurrence: None)
  Receive Date: 20050504
  Receipt Date: 20041027
  Transmission Date: 20051028
  Serious: Yes (Other)
  Sender: FDA-Public Use
  Company Number: PHEH2004US11599

PATIENT
  Age: 67 Year
  Sex: Female

DRUGS (3)
  1. DIOVAN HCT [Suspect]
     Dosage: 160 MG VAL/12.5 MG HCT QD ORAL
     Route: 048
     Dates: end: 20040801
  2. PRAVACHOL [Suspect]
     Dates: end: 20031006
  3. LOTREL [Concomitant]

REACTIONS (3)
  - ALANINE AMINOTRANSFERASE INCREASED [None]
  - ASPARTATE AMINOTRANSFERASE INCREASED [None]
  - HEPATIC ENZYME INCREASED [None]
